FAERS Safety Report 12369444 (Version 1)
Quarter: 2016Q2

REPORT INFORMATION
  Report Type: Spontaneous
  Country: US (occurrence: None)
  Receive Date: 20160513
  Receipt Date: 20160513
  Transmission Date: 20160815
  Serious: Yes (Other)
  Sender: FDA-Public Use
  Company Number: None

PATIENT
  Age: 57 Year
  Sex: Female
  Weight: 104.33 kg

DRUGS (17)
  1. GLUCOSAMINE SULFATE [Concomitant]
     Active Substance: GLUCOSAMINE SULFATE
  2. CIPRO [Suspect]
     Active Substance: CIPROFLOXACIN HYDROCHLORIDE
     Indication: ANTIBIOTIC PROPHYLAXIS
     Route: 048
     Dates: start: 20120202, end: 20120210
  3. AMLODIPINE [Concomitant]
     Active Substance: AMLODIPINE BESYLATE
  4. NAC [Concomitant]
  5. CIPRO [Suspect]
     Active Substance: CIPROFLOXACIN HYDROCHLORIDE
     Indication: URINARY TRACT INFECTION
     Route: 048
     Dates: start: 20120202, end: 20120210
  6. TRAMADOL. [Concomitant]
     Active Substance: TRAMADOL
  7. LAMOTRIGINE. [Concomitant]
     Active Substance: LAMOTRIGINE
  8. FLEXARIL [Concomitant]
  9. VITAMIN D3 [Concomitant]
     Active Substance: CHOLECALCIFEROL
  10. VITAMIN E [Concomitant]
     Active Substance: .ALPHA.-TOCOPHEROL
  11. VITAMIN C [Concomitant]
     Active Substance: ASCORBIC ACID
  12. CALCIUM [Concomitant]
     Active Substance: CALCIUM
  13. CQ10 [Concomitant]
     Active Substance: UBIDECARENONE
  14. ALPHA LIPOIC ACID [Concomitant]
     Active Substance: .ALPHA.-LIPOIC ACID
  15. VITAMIN B COMPLEX [Concomitant]
     Active Substance: CYANOCOBALAMIN\DEXPANTHENOL\NIACINAMIDE\PYRIDOXINE HYDROCHLORIDE\RIBOFLAVIN 5^-PHOSPHATE SODIUM\THIAMINE HYDROCHLORIDE\VITAMIN B COMPLEX
  16. LYRICA [Concomitant]
     Active Substance: PREGABALIN
  17. MAGNESIUM [Concomitant]
     Active Substance: MAGNESIUM

REACTIONS (7)
  - Trismus [None]
  - Pain in extremity [None]
  - Rash erythematous [None]
  - Rash pruritic [None]
  - Feeling cold [None]
  - Burning sensation [None]
  - Tendon pain [None]
